FAERS Safety Report 6275895-X (Version None)
Quarter: 2009Q3

REPORT INFORMATION
  Report Type: 
  Country: None (occurrence: None)
  Receive Date: 20090720
  Receipt Date: 20090709
  Transmission Date: 20100115
  Serious: Yes (Death, Hospitalization)
  Sender: FDA-Public Use
  Company Number: 2009-02009

PATIENT
  Age: 68 Year
  Sex: Male
  Weight: 99.5 kg

DRUGS (8)
  1. VELCADE [Suspect]
     Indication: MULTIPLE MYELOMA
     Dosage: 1.3 MG/M2 IV BOLUS
     Route: 040
     Dates: start: 20090427, end: 20090504
  2. REVLIMID [Suspect]
     Indication: MULTIPLE MYELOMA
     Dosage: 25 MG, ORAL
     Route: 048
     Dates: start: 20090427, end: 20090511
  3. DEXAMETHASONE TAB [Suspect]
     Indication: MULTIPLE MYELOMA
     Dosage: 20 MG, ORAL
     Route: 048
     Dates: start: 20090427, end: 20090509
  4. ASPIRIN [Concomitant]
  5. BACTRIM [Concomitant]
  6. CARISOPRODOL [Concomitant]
  7. PERCOCET [Concomitant]
  8. VALTREX (AVLACICLOVIR HYDROCHLORIDE) [Concomitant]

REACTIONS (33)
  - ABDOMINAL PAIN [None]
  - ASTHENIA [None]
  - BACK INJURY [None]
  - BLOOD CHLORIDE INCREASED [None]
  - BLOOD GLUCOSE DECREASED [None]
  - BLOOD GLUCOSE INCREASED [None]
  - BLOOD POTASSIUM INCREASED [None]
  - BLOOD SODIUM DECREASED [None]
  - CARBON DIOXIDE DECREASED [None]
  - COMA [None]
  - CULTURE STOOL POSITIVE [None]
  - DEHYDRATION [None]
  - DIALYSIS [None]
  - DIARRHOEA [None]
  - ENCEPHALOPATHY [None]
  - ENTEROCOCCAL INFECTION [None]
  - FEBRILE NEUTROPENIA [None]
  - HYPERBILIRUBINAEMIA [None]
  - HYPOTENSION [None]
  - HYPOXIA [None]
  - LUNG INFILTRATION [None]
  - MULTI-ORGAN FAILURE [None]
  - MUSCLE SPASMS [None]
  - OLIGURIA [None]
  - PANCYTOPENIA [None]
  - PNEUMONIA [None]
  - RENAL FAILURE [None]
  - RENAL TUBULAR NECROSIS [None]
  - RESPIRATORY FAILURE [None]
  - SEPSIS [None]
  - SEPTIC SHOCK [None]
  - STEVENS-JOHNSON SYNDROME [None]
  - UNRESPONSIVE TO STIMULI [None]
